FAERS Safety Report 8925797 (Version 2)
Quarter: 2013Q1

REPORT INFORMATION
  Report Type: Spontaneous
  Country: JP (occurrence: JP)
  Receive Date: 20121126
  Receipt Date: 20130102
  Transmission Date: 20140127
  Serious: Yes (Hospitalization, Other)
  Sender: FDA-Public Use
  Company Number: PHHY2012JP106898

PATIENT
  Age: 57 Year
  Sex: Male

DRUGS (2)
  1. TEGRETOL [Suspect]
     Indication: EPILEPSY
     Dosage: 400 MG, DAILY IN TWO DOSES PER DAY
     Route: 048
     Dates: start: 20110413, end: 201206
  2. TERBINAFINE [Concomitant]
     Indication: TINEA PEDIS
     Dosage: 125 MG, DAILY
     Route: 048
     Dates: start: 20120530, end: 201206

REACTIONS (10)
  - Pneumonia [Recovering/Resolving]
  - Cough [Unknown]
  - Dyspnoea exertional [Unknown]
  - Lung infiltration [Unknown]
  - Hypoxia [Unknown]
  - Macular opacity [Unknown]
  - Inflammation [Unknown]
  - Lymphocyte count increased [Unknown]
  - Monocyte count increased [Unknown]
  - Neutrophil count decreased [Unknown]
